FAERS Safety Report 5576550-1 (Version None)
Quarter: 2007Q4

REPORT INFORMATION
  Report Type: 
  Country: None (occurrence: None)
  Receive Date: 20071228
  Receipt Date: 20071227
  Transmission Date: 20080405
  Serious: Yes (Other)
  Sender: FDA-Public Use
  Company Number: D0055613A

PATIENT
  Sex: Male

DRUGS (2)
  1. ZYBAN [Suspect]
  2. ALCOHOL [Suspect]
     Route: 065

REACTIONS (2)
  - PARANOIA [None]
  - VIOLENCE-RELATED SYMPTOM [None]
